FAERS Safety Report 13530675 (Version 8)
Quarter: 2019Q2

REPORT INFORMATION
  Report Type: Spontaneous
  Country: US (occurrence: US)
  Receive Date: 20170510
  Receipt Date: 20190530
  Transmission Date: 20190711
  Serious: Yes (Other)
  Sender: FDA-Public Use
  Company Number: PHEH2017US013885

PATIENT
  Age: 31 Year
  Sex: Female
  Weight: 79.37 kg

DRUGS (3)
  1. ONDANSETRON [Suspect]
     Active Substance: ONDANSETRON
     Indication: MORNING SICKNESS
     Dosage: 08 MG, PRN
     Route: 065
     Dates: start: 20140922, end: 20150927
  2. ZOFRAN ODT [Suspect]
     Active Substance: ONDANSETRON HYDROCHLORIDE
     Indication: MORNING SICKNESS
     Dosage: 01 DF, Q8H
     Route: 048
  3. ZOFRAN [Suspect]
     Active Substance: ONDANSETRON HYDROCHLORIDE
     Indication: PRODUCT USED FOR UNKNOWN INDICATION
     Route: 048

REACTIONS (38)
  - Oligohydramnios [Unknown]
  - Emotional distress [Unknown]
  - Oropharyngeal pain [Unknown]
  - Dry eye [Unknown]
  - Nasal congestion [Unknown]
  - Bronchitis [Unknown]
  - Product use in unapproved indication [Unknown]
  - Dysuria [Unknown]
  - Back pain [Unknown]
  - Pharyngitis [Unknown]
  - Injury [Unknown]
  - Cough [Unknown]
  - Insomnia [Unknown]
  - Tarsal tunnel syndrome [Unknown]
  - Abdominal pain [Unknown]
  - Endometritis [Unknown]
  - Sinusitis [Unknown]
  - Plantar fascial fibromatosis [Unknown]
  - Dysphonia [Unknown]
  - Dyspnoea [Unknown]
  - Palpitations [Unknown]
  - Maternal exposure during pregnancy [Unknown]
  - Ear infection [Unknown]
  - Tendonitis [Unknown]
  - Plantar fasciitis [Unknown]
  - Bladder pain [Unknown]
  - Fatigue [Unknown]
  - Stillbirth [Unknown]
  - Tonsillitis [Unknown]
  - Foot deformity [Unknown]
  - Acute sinusitis [Unknown]
  - Anxiety [Unknown]
  - Pyrexia [Unknown]
  - Constipation [Unknown]
  - Depression [Unknown]
  - Neck pain [Unknown]
  - Adjustment disorder with anxiety [Unknown]
  - Headache [Unknown]

NARRATIVE: CASE EVENT DATE: 20150506
